FAERS Safety Report 16487948 (Version 1)
Quarter: 2019Q2

REPORT INFORMATION
  Report Type: Spontaneous
  Country: US (occurrence: US)
  Receive Date: 20190627
  Receipt Date: 20190627
  Transmission Date: 20190711
  Serious: Yes (Other)
  Sender: FDA-Public Use
  Company Number: US-PFIZER INC-2019266798

PATIENT
  Age: 56 Year
  Sex: Female

DRUGS (1)
  1. PREMARIN [Suspect]
     Active Substance: ESTROGENS, CONJUGATED
     Dosage: UNK (STRENGTH: 1.25 MG, QUANTITY FOR 90 DAYS: 90, 4 REFILLS)

REACTIONS (1)
  - Chronic kidney disease [Unknown]
